FAERS Safety Report 22017033 (Version 1)
Quarter: 2023Q1

REPORT INFORMATION
  Report Type: Spontaneous
  Country: ES (occurrence: ES)
  Receive Date: 20230221
  Receipt Date: 20230221
  Transmission Date: 20230418
  Serious: Yes (Life-Threatening, Hospitalization)
  Sender: FDA-Public Use
  Company Number: None

PATIENT
  Age: 82 Year
  Sex: Male

DRUGS (4)
  1. VALSARTAN [Interacting]
     Active Substance: VALSARTAN
     Indication: Hypertension
     Dosage: 160 MG, QD, SINGLE-DRUG ANGIOTENS II ANTAGONISTS C09C A03
     Route: 048
     Dates: start: 20220705
  2. FUROSEMIDE [Interacting]
     Active Substance: FUROSEMIDE
     Indication: Hyponatraemia
     Dosage: 80 MG, QD, (1615A)
     Route: 048
     Dates: start: 201903
  3. FEBUXOSTAT [Concomitant]
     Active Substance: FEBUXOSTAT
     Indication: Hyperuricaemia
     Dosage: 80 MG, QD, 28 TABLETS
     Route: 048
     Dates: start: 202002
  4. AMLODIPINE BESYLATE [Concomitant]
     Active Substance: AMLODIPINE BESYLATE
     Indication: Hypertension
     Dosage: 5 MG, QD, (2503A)
     Route: 048
     Dates: start: 201412

REACTIONS (1)
  - Hyponatraemia [Recovered/Resolved]

NARRATIVE: CASE EVENT DATE: 20220922
